FAERS Safety Report 11227946 (Version 2)
Quarter: 2015Q3

REPORT INFORMATION
  Report Type: Report from Study
  Country: JP (occurrence: JP)
  Receive Date: 20150630
  Receipt Date: 20150701
  Transmission Date: 20151125
  Serious: Yes (Death, Hospitalization)
  Sender: FDA-Public Use
  Company Number: JP-BAYER-2014-144571

PATIENT
  Age: 77 Year
  Sex: Male
  Weight: 55 kg

DRUGS (3)
  1. STIVARGA [Suspect]
     Active Substance: REGORAFENIB
     Indication: RECTAL CANCER
     Dosage: DAILY DOSE 160 MG
     Route: 048
     Dates: start: 20140704, end: 20140719
  2. STIVARGA [Suspect]
     Active Substance: REGORAFENIB
     Indication: RECTAL CANCER
     Dosage: DAILY DOSE 160 MG
     Route: 048
     Dates: start: 20140722, end: 20140728
  3. LOXONIN [Suspect]
     Active Substance: LOXOPROFEN SODIUM
     Dosage: 180 MG DAILY
     Route: 048
     Dates: end: 20140720

REACTIONS (7)
  - Malaise [Recovering/Resolving]
  - Constipation [Recovered/Resolved]
  - Pyrexia [Recovered/Resolved]
  - Decreased appetite [Recovering/Resolving]
  - Small intestinal haemorrhage [Recovered/Resolved]
  - Malaise [Recovering/Resolving]
  - Rectal cancer [Fatal]

NARRATIVE: CASE EVENT DATE: 20140706
